FAERS Safety Report 8491406-2 (Version None)
Quarter: 2012Q3

REPORT INFORMATION
  Report Type: 
  Country: None (occurrence: None)
  Receive Date: 20120706
  Receipt Date: 20120626
  Transmission Date: 20120928
  Serious: Yes (Hospitalization)
  Sender: FDA-Public Use
  Company Number: CA-JNJFOC-20120607625

PATIENT
  Sex: Male
  Weight: 68.04 kg

DRUGS (3)
  1. REMICADE [Suspect]
     Route: 042
     Dates: start: 20120615
  2. REMICADE [Suspect]
     Indication: COLITIS ULCERATIVE
     Route: 042
     Dates: start: 20120504
  3. PREDNISONE TAB [Concomitant]
     Route: 048

REACTIONS (7)
  - PYREXIA [None]
  - PAIN [None]
  - ABDOMINAL PAIN [None]
  - VOMITING [None]
  - DIARRHOEA [None]
  - NAUSEA [None]
  - BACK PAIN [None]
